FAERS Safety Report 5268339-8 (Version None)
Quarter: 2007Q1

REPORT INFORMATION
  Report Type: 
  Country: None (occurrence: None)
  Receive Date: 20070319
  Receipt Date: 20070307
  Transmission Date: 20070707
  Serious: Yes (Hospitalization)
  Sender: FDA-Public Use
  Company Number: US-AMGEN-US212361

PATIENT
  Sex: Male
  Weight: 60.8 kg

DRUGS (1)
  1. VECTIBIX [Suspect]
     Indication: COLORECTAL CANCER
     Route: 042
     Dates: start: 20070225

REACTIONS (4)
  - CHILLS [None]
  - PHARYNGOLARYNGEAL PAIN [None]
  - PYREXIA [None]
  - WHITE BLOOD CELL COUNT INCREASED [None]
